FAERS Safety Report 16970353 (Version 1)
Quarter: 2019Q4

REPORT INFORMATION
  Report Type: Spontaneous
  Country: AU (occurrence: AU)
  Receive Date: 20191029
  Receipt Date: 20191029
  Transmission Date: 20200122
  Serious: Yes (Other)
  Sender: FDA-Public Use
  Company Number: AU-SAMSUNG BIOEPIS-SB-2019-31059

PATIENT
  Sex: Female

DRUGS (1)
  1. BRENZYS [Suspect]
     Active Substance: ETANERCEPT
     Indication: RHEUMATOID ARTHRITIS
     Dosage: UNKNOWN
     Route: 065
     Dates: start: 201805

REACTIONS (2)
  - Bone giant cell tumour benign [Unknown]
  - Tooth extraction [Unknown]
